FAERS Safety Report 4874907-5 (Version None)
Quarter: 2006Q1

REPORT INFORMATION
  Report Type: 
  Country: None (occurrence: None)
  Receive Date: 20060104
  Receipt Date: 20051222
  Transmission Date: 20060701
  Serious: Yes (Hospitalization)
  Sender: FDA-Public Use
  Company Number: SUSI-2005-00954

PATIENT
  Age: 19 Year
  Sex: Male

DRUGS (7)
  1. PENTASA [Suspect]
     Indication: CROHN'S DISEASE
     Dosage: SEE IMAGE
     Dates: start: 20050801, end: 20051014
  2. PENTASA [Suspect]
     Indication: CROHN'S DISEASE
     Dosage: SEE IMAGE
     Dates: start: 20051015, end: 20051018
  3. PENTASA [Suspect]
     Indication: CROHN'S DISEASE
     Dosage: SEE IMAGE
     Dates: start: 20051015, end: 20051018
  4. PENTASA [Suspect]
     Indication: CROHN'S DISEASE
     Dosage: SEE IMAGE
     Dates: start: 20051026, end: 20051028
  5. PENTASA [Suspect]
     Indication: CROHN'S DISEASE
     Dosage: SEE IMAGE
     Dates: start: 20051026, end: 20051028
  6. OMEPRAZOLE [Concomitant]
  7. FERROUS SODIUM CITRATE (FERROUS SODIUM CITRATE) [Concomitant]

REACTIONS (3)
  - DUODENAL OBSTRUCTION [None]
  - GASTROENTERITIS EOSINOPHILIC [None]
  - LYMPHOCYTE STIMULATION TEST POSITIVE [None]
